FAERS Safety Report 18543801 (Version 1)
Quarter: 2020Q4

REPORT INFORMATION
  Report Type: Report from Study
  Country: CN (occurrence: CN)
  Receive Date: 20201125
  Receipt Date: 20201125
  Transmission Date: 20210114
  Serious: Yes (Hospitalization)
  Sender: FDA-Public Use
  Company Number: CN-ROCHE-2255792

PATIENT
  Age: 47 Year
  Sex: Female
  Weight: 56 kg

DRUGS (54)
  1. BEVACIZUMAB. [Suspect]
     Active Substance: BEVACIZUMAB
     Indication: MALIGNANT PERITONEAL NEOPLASM
     Dosage: DATE OF MOST RECENT DOSE OF BEVACIZUMAB PRIOR TO AE ONSET: 22/JAN/2019
     Route: 042
     Dates: start: 20190104
  2. CREATINE PHOSPHATE SODIUM [Concomitant]
     Active Substance: CREATINE
     Dates: start: 20190214, end: 20190216
  3. AMIFOSTINE. [Concomitant]
     Active Substance: AMIFOSTINE
     Dates: start: 20190104, end: 20190104
  4. VITAMIN C [Concomitant]
     Active Substance: ASCORBIC ACID
     Dates: start: 20190104, end: 20190104
  5. CALCIUM GLUCONATE. [Concomitant]
     Active Substance: CALCIUM GLUCONATE
     Dates: start: 20190122, end: 20190122
  6. DIPHENHYDRAMINE HYDROCHLORIDE. [Concomitant]
     Active Substance: DIPHENHYDRAMINE HYDROCHLORIDE
     Dates: start: 20190215, end: 20190215
  7. COMPOUND AMMONIUM GLYCYRRHETATE [Concomitant]
     Dates: start: 20190214, end: 20190216
  8. CEFAZOLIN SODIUM PENTAHYDRATE [Concomitant]
     Active Substance: CEFAZOLIN SODIUM
     Dates: start: 20190127, end: 20190127
  9. PANTOPRAZOLE SODIUM. [Concomitant]
     Active Substance: PANTOPRAZOLE SODIUM
     Dates: start: 20190104, end: 20190104
  10. PANTOPRAZOLE SODIUM. [Concomitant]
     Active Substance: PANTOPRAZOLE SODIUM
     Dates: start: 20190215, end: 20190215
  11. CIMETIDINE [Concomitant]
     Active Substance: CIMETIDINE
     Dates: start: 20190122, end: 20190122
  12. CIMETIDINE [Concomitant]
     Active Substance: CIMETIDINE
     Dates: start: 20190215, end: 20190215
  13. ALANYL GLUTAMINE [Concomitant]
     Active Substance: ALANYL GLUTAMINE
     Dates: start: 20190127, end: 20190129
  14. COMPOUND GLUTAMINE GRANULES [Concomitant]
     Dates: start: 20190129, end: 20190201
  15. LANSOPRAZOLE. [Concomitant]
     Active Substance: LANSOPRAZOLE
     Dates: start: 20190127, end: 20190127
  16. GLUTATHIONE REDUCED [Concomitant]
     Dates: start: 20190102, end: 20190102
  17. DIAMMONIUM GLYCYRRHIZINATE [Concomitant]
     Active Substance: HERBALS\DIAMMONIUM GLYCYRRHIZINATE
     Dates: start: 20190102, end: 20190105
  18. CALCIUM GLUCONATE. [Concomitant]
     Active Substance: CALCIUM GLUCONATE
     Dates: start: 20190104, end: 20190104
  19. CREATINE PHOSPHATE SODIUM [Concomitant]
     Active Substance: CREATINE
     Dates: start: 20190121, end: 20190123
  20. INVERT SUGAR [Concomitant]
     Active Substance: INVERT SUGAR
  21. VITAMIN B6 [Concomitant]
     Active Substance: PYRIDOXINE HYDROCHLORIDE
     Dates: start: 20190104, end: 20190104
  22. VITAMIN B6 [Concomitant]
     Active Substance: PYRIDOXINE HYDROCHLORIDE
     Dates: start: 20190122, end: 20190122
  23. TROPISETRON HYDROCHLORIDE [Concomitant]
     Active Substance: TROPISETRON HYDROCHLORIDE
     Dates: start: 20190104, end: 20190104
  24. AZASETRON HYDROCHLORIDE [Concomitant]
     Active Substance: AZASETRON HYDROCHLORIDE
     Dates: start: 20190122, end: 20190122
  25. POTASSIUM CHLORIDE. [Concomitant]
     Active Substance: POTASSIUM CHLORIDE
     Dates: start: 20190127, end: 20190129
  26. ATEZOLIZUMAB. [Suspect]
     Active Substance: ATEZOLIZUMAB
     Indication: MALIGNANT PERITONEAL NEOPLASM
     Dosage: DATE OF MOST RECENT DOSE OF BLINDED ATEZOLIZUMAB PRIOR TO AE ONSET: 22/JAN/2019
     Route: 042
     Dates: start: 20181214
  27. PACLITAXEL. [Suspect]
     Active Substance: PACLITAXEL
     Indication: MALIGNANT PERITONEAL NEOPLASM
     Dosage: DATE OF MOST RECENT DOSE OF PACLITAXEL (272 MG) PRIOR TO AE ONSET: 22/JAN/2019
     Route: 042
     Dates: start: 20181214
  28. CARBOPLATIN. [Suspect]
     Active Substance: CARBOPLATIN
     Indication: MALIGNANT PERITONEAL NEOPLASM
     Dosage: DATE OF MOST RECENT DOSE OF CARBOPLATIN (682 MG) PRIOR TO AE ONSET: 22/JAN/2019?AT A DOSE TO ACHIEVE
     Route: 042
     Dates: start: 20181214
  29. MAGNESIUM ISOGLYCYRRHIZINATE [Concomitant]
     Active Substance: MAGNESIUM ISOGLYCYRRHIZINATE
     Dates: start: 20190102, end: 20190105
  30. DIAMMONIUM GLYCYRRHIZINATE [Concomitant]
     Active Substance: HERBALS\DIAMMONIUM GLYCYRRHIZINATE
     Dates: start: 20190121, end: 20190122
  31. DEXAMETHASONE SODIUM PHOSPHATE. [Concomitant]
     Active Substance: DEXAMETHASONE SODIUM PHOSPHATE
     Route: 042
  32. HEPARIN CALCIUM [Concomitant]
     Active Substance: HEPARIN CALCIUM
     Dates: start: 20190104, end: 20190104
  33. VITAMIN B6 [Concomitant]
     Active Substance: PYRIDOXINE HYDROCHLORIDE
     Dates: start: 20190215, end: 20190215
  34. DEXAMETHASONE. [Concomitant]
     Active Substance: DEXAMETHASONE
     Route: 048
     Dates: start: 20190103, end: 20190104
  35. DIPHENHYDRAMINE HYDROCHLORIDE. [Concomitant]
     Active Substance: DIPHENHYDRAMINE HYDROCHLORIDE
     Dates: start: 20190104, end: 20190104
  36. CEFAZOLIN SODIUM. [Concomitant]
     Active Substance: CEFAZOLIN SODIUM
     Dates: start: 20190127, end: 20190131
  37. MANNATIDE [Concomitant]
     Dates: start: 20190127, end: 20190127
  38. DEXAMETHASONE SODIUM PHOSPHATE. [Concomitant]
     Active Substance: DEXAMETHASONE SODIUM PHOSPHATE
     Route: 042
     Dates: start: 20190104, end: 20190104
  39. PANTOPRAZOLE SODIUM. [Concomitant]
     Active Substance: PANTOPRAZOLE SODIUM
     Dates: start: 20190122, end: 20190122
  40. INVERT SUGAR [Concomitant]
     Active Substance: INVERT SUGAR
     Dates: start: 20190127, end: 20190129
  41. AMIFOSTINE. [Concomitant]
     Active Substance: AMIFOSTINE
     Dates: start: 20190215, end: 20190215
  42. AMIFOSTINE. [Concomitant]
     Active Substance: AMIFOSTINE
     Dates: start: 20190122, end: 20190122
  43. HEPARIN CALCIUM [Concomitant]
     Active Substance: HEPARIN CALCIUM
     Dates: start: 20190122, end: 20190122
  44. DEXAMETHASONE. [Concomitant]
     Active Substance: DEXAMETHASONE
     Route: 048
     Dates: start: 20190121, end: 20190122
  45. DIPHENHYDRAMINE HYDROCHLORIDE. [Concomitant]
     Active Substance: DIPHENHYDRAMINE HYDROCHLORIDE
     Dates: start: 20190122, end: 20190122
  46. COMPOUND AMMONIUM GLYCYRRHETATE [Concomitant]
     Dates: start: 20190121, end: 20190123
  47. DAGES [CELLULASE;DIASTASE;PANCREATIN;PANCRELIPASE;PAPAIN;PEPSIN;URSODE [Concomitant]
     Dates: start: 20190129, end: 20190201
  48. INVERT SUGAR [Concomitant]
     Active Substance: INVERT SUGAR
     Dates: start: 20190127, end: 20190127
  49. GLUTATHIONE REDUCED [Concomitant]
     Dates: start: 20190121, end: 20190122
  50. CREATINE PHOSPHATE SODIUM [Concomitant]
     Active Substance: CREATINE
     Dates: start: 20190104, end: 20190104
  51. DEXAMETHASONE SODIUM PHOSPHATE. [Concomitant]
     Active Substance: DEXAMETHASONE SODIUM PHOSPHATE
     Route: 042
     Dates: start: 20190122, end: 20190122
  52. HEPARIN CALCIUM [Concomitant]
     Active Substance: HEPARIN CALCIUM
     Dates: start: 20190215, end: 20190215
  53. DEXAMETHASONE. [Concomitant]
     Active Substance: DEXAMETHASONE
     Route: 048
     Dates: start: 20190214, end: 20190214
  54. POLYENE PHOSPHATIDYLCHOLINE [Concomitant]
     Active Substance: PHOSPHOLIPID
     Dates: start: 20190107, end: 20190118

REACTIONS (1)
  - Gastroenteritis [Recovered/Resolved]

NARRATIVE: CASE EVENT DATE: 20190127
